FAERS Safety Report 11487872 (Version 1)
Quarter: 2015Q3

REPORT INFORMATION
  Report Type: Spontaneous
  Country: US (occurrence: US)
  Receive Date: 20150909
  Receipt Date: 20150909
  Transmission Date: 20151125
  Serious: Yes (Other)
  Sender: FDA-Public Use
  Company Number: US-PFIZER INC-2015295508

PATIENT
  Age: 52 Year
  Sex: Female
  Weight: 57.6 kg

DRUGS (2)
  1. REMODULIN [Suspect]
     Active Substance: TREPROSTINIL
     Indication: PULMONARY ARTERIAL HYPERTENSION
     Dosage: 0.048 ?G/KG, UNK (?G/KG/MIN)
     Route: 041
     Dates: start: 20120412
  2. REVATIO [Suspect]
     Active Substance: SILDENAFIL CITRATE
     Dosage: UNK

REACTIONS (2)
  - Blood pressure decreased [Unknown]
  - Blood glucose decreased [Unknown]
